FAERS Safety Report 20297333 (Version 1)
Quarter: 2022Q1

REPORT INFORMATION
  Report Type: Spontaneous
  Country: US (occurrence: None)
  Receive Date: 20220105
  Receipt Date: 20220105
  Transmission Date: 20220423
  Serious: No
  Sender: FDA-Public Use
  Company Number: US-ROCHE-2876266

PATIENT
  Sex: Male

DRUGS (3)
  1. HEMLIBRA [Suspect]
     Active Substance: EMICIZUMAB-KXWH
     Indication: Factor VIII deficiency
     Dosage: USE ONE 150 MG VIAL AND TWO 60 MG VIALS PER DOSE
     Route: 058
  2. AMICAR [Concomitant]
     Active Substance: AMINOCAPROIC ACID
     Indication: Product used for unknown indication
     Route: 065
  3. TRANEXAMIC ACID [Concomitant]
     Active Substance: TRANEXAMIC ACID
     Indication: Product used for unknown indication
     Route: 065

REACTIONS (3)
  - Infusion site pain [Unknown]
  - Infusion site swelling [Unknown]
  - Arthralgia [Unknown]
